FAERS Safety Report 5853575-X (Version None)
Quarter: 2008Q3

REPORT INFORMATION
  Report Type: 
  Country: None (occurrence: None)
  Receive Date: 20080822
  Receipt Date: 20080812
  Transmission Date: 20090109
  Serious: Yes (Congenital Anomaly)
  Sender: FDA-Public Use
  Company Number: DE-WYE-G01994608

PATIENT
  Sex: Female

DRUGS (2)
  1. TREVILOR [Suspect]
     Route: 064
  2. TRAZODONE HCL [Concomitant]
     Route: 064

REACTIONS (5)
  - AGITATION NEONATAL [None]
  - DRUG EXPOSURE DURING PREGNANCY [None]
  - MICROCEPHALY [None]
  - PREMATURE BABY [None]
  - TREMOR NEONATAL [None]
